FAERS Safety Report 4289166-4 (Version None)
Quarter: 2004Q1

REPORT INFORMATION
  Report Type: 
  Country: None (occurrence: None)
  Receive Date: 20040206
  Receipt Date: 20040126
  Transmission Date: 20041129
  Serious: Yes (Death)
  Sender: FDA-Public Use
  Company Number: JP-JNJFOC-20040103395

PATIENT
  Age: 65 Year
  Sex: Male
  Weight: 50.9 kg

DRUGS (8)
  1. REMICADE [Suspect]
     Indication: CROHN'S DISEASE
     Dosage: 5 MG/KG, 1 IN 1 AS NECESSARY, INTRAVENOUS DRIP
     Route: 041
     Dates: start: 20030728, end: 20030728
  2. PREDNISOLONE [Concomitant]
  3. SOLU-MEDROL [Concomitant]
  4. STERONEMA (BETAMETHASONE SODIUM PHOSPHATE) [Concomitant]
  5. IMURAN [Concomitant]
  6. FRAGILE (ALL OTHER THERPEUTIC PRODUCTS) [Concomitant]
  7. PENTASA [Concomitant]
  8. ENTERAL NUTRITION (SOLUTIONS FOR PARENTERAL NUTRITION) [Concomitant]

REACTIONS (4)
  - CROHN'S DISEASE [None]
  - DISEASE PROGRESSION [None]
  - DRUG INEFFECTIVE [None]
  - GENERAL PHYSICAL HEALTH DETERIORATION [None]
